FAERS Safety Report 23351874 (Version 3)
Quarter: 2024Q2

REPORT INFORMATION
  Report Type: Spontaneous
  Country: GB (occurrence: GB)
  Receive Date: 20231229
  Receipt Date: 20240613
  Transmission Date: 20240716
  Serious: Yes (Hospitalization, Other)
  Sender: FDA-Public Use
  Company Number: GB-MYLANLABS-2023M1130985

PATIENT
  Age: 45 Year
  Sex: Female

DRUGS (1)
  1. CLOZARIL [Suspect]
     Active Substance: CLOZAPINE
     Indication: Schizophrenia
     Dosage: UNK (STOP DATE: 01-JUN-2024 APPROXIMATELY)
     Route: 048
     Dates: start: 20230731, end: 202406

REACTIONS (4)
  - Schizophrenia [Unknown]
  - Thrombocytosis [Not Recovered/Not Resolved]
  - Sedation [Unknown]
  - Anaemia [Not Recovered/Not Resolved]

NARRATIVE: CASE EVENT DATE: 20231221
